FAERS Safety Report 24586469 (Version 5)
Quarter: 2025Q2

REPORT INFORMATION
  Report Type: Report from Study
  Country: US (occurrence: US)
  Receive Date: 20241106
  Receipt Date: 20250404
  Transmission Date: 20250717
  Serious: Yes (Hospitalization, Other)
  Sender: ABBVIE
  Company Number: US-ABBVIE-5987871

PATIENT
  Age: 57 Year
  Sex: Female
  Weight: 119 kg

DRUGS (4)
  1. RINVOQ [Suspect]
     Active Substance: UPADACITINIB
     Indication: Rheumatoid arthritis
     Dosage: FORM STRENGTH: 15 MG
     Route: 048
  2. RINVOQ [Suspect]
     Active Substance: UPADACITINIB
     Indication: Rheumatoid arthritis
     Dosage: FORM STRENGTH: 15 MG?LAST ADMIN DATE: 2024
     Route: 048
     Dates: start: 20240509
  3. RINVOQ [Suspect]
     Active Substance: UPADACITINIB
     Indication: Rheumatoid arthritis
     Dosage: FORM STRENGTH: 15 MG?FIRST ADMIN DATE: 2024
     Route: 048
  4. RINVOQ [Suspect]
     Active Substance: UPADACITINIB
     Indication: Rheumatoid arthritis
     Dosage: FORM STRENGTH: 15 MG?LAST ADMIN DATE: MAY 2024
     Route: 048
     Dates: start: 20240504

REACTIONS (7)
  - Arthritis [Recovered/Resolved]
  - Pain in extremity [Recovered/Resolved]
  - Therapeutic product effect delayed [Recovered/Resolved]
  - Pain [Unknown]
  - General physical condition abnormal [Unknown]
  - Lethargy [Not Recovered/Not Resolved]
  - Fatigue [Not Recovered/Not Resolved]

NARRATIVE: CASE EVENT DATE: 20240101
